FAERS Safety Report 25998977 (Version 1)
Quarter: 2025Q4

REPORT INFORMATION
  Report Type: Spontaneous
  Country: IN (occurrence: IN)
  Receive Date: 20251105
  Receipt Date: 20251105
  Transmission Date: 20260117
  Serious: No
  Sender: ABBVIE
  Company Number: IN-ABBVIE-6376132

PATIENT

DRUGS (1)
  1. FML [Suspect]
     Active Substance: FLUOROMETHOLONE
     Indication: Product used for unknown indication
     Dosage: EYE DROPS, SOLUTION, STRENGTH 0.1% W/V
     Route: 047

REACTIONS (3)
  - Poor quality product administered [Unknown]
  - Product container issue [Unknown]
  - Product quality issue [Unknown]
